FAERS Safety Report 20647171 (Version 1)
Quarter: 2022Q1

REPORT INFORMATION
  Report Type: Spontaneous
  Country: US (occurrence: US)
  Receive Date: 20220329
  Receipt Date: 20220329
  Transmission Date: 20220423
  Serious: No
  Sender: FDA-Public Use
  Company Number: US-BAYER-2022A042183

PATIENT
  Age: 25 Year
  Sex: Female

DRUGS (4)
  1. SKYLA [Suspect]
     Active Substance: LEVONORGESTREL
     Indication: Device issue
     Dosage: 14?G/DAY
     Route: 015
     Dates: start: 20181225, end: 20210126
  2. SKYLA [Suspect]
     Active Substance: LEVONORGESTREL
     Indication: Dermatitis atopic
  3. SKYLA [Suspect]
     Active Substance: LEVONORGESTREL
     Indication: Contraception
  4. FIRAZYR [Concomitant]
     Active Substance: ICATIBANT ACETATE

REACTIONS (1)
  - Abdominal pain upper [Not Recovered/Not Resolved]

NARRATIVE: CASE EVENT DATE: 20220319
